FAERS Safety Report 15413247 (Version 1)
Quarter: 2018Q3

REPORT INFORMATION
  Report Type: Spontaneous
  Country: US (occurrence: US)
  Receive Date: 20180921
  Receipt Date: 20180921
  Transmission Date: 20181010
  Serious: Yes (Hospitalization)
  Sender: FDA-Public Use
  Company Number: US-LANNETT COMPANY, INC.-US-2018LAN001142

PATIENT

DRUGS (1)
  1. BACLOFEN (20MG) [Suspect]
     Active Substance: BACLOFEN
     Indication: CEREBRAL PALSY
     Dosage: BASELINE RATE 419 ?G, QD
     Route: 037

REACTIONS (9)
  - Overdose [Unknown]
  - Hypoventilation [Recovered/Resolved]
  - Hypothermia [Recovered/Resolved]
  - Vomiting [Recovered/Resolved]
  - Device infusion issue [Unknown]
  - Somnolence [Recovered/Resolved]
  - Altered state of consciousness [Recovered/Resolved]
  - Unresponsive to stimuli [Recovered/Resolved]
  - Hypotonia [Recovered/Resolved]
